FAERS Safety Report 4309691-7 (Version None)
Quarter: 2004Q1

REPORT INFORMATION
  Report Type: 
  Country: None (occurrence: None)
  Receive Date: 20040302
  Receipt Date: 20040217
  Transmission Date: 20041129
  Serious: Yes (Hospitalization)
  Sender: FDA-Public Use
  Company Number: 2004AP00941

PATIENT
  Age: 5 Year
  Sex: Male
  Weight: 18.6 kg

DRUGS (9)
  1. BUDESONIDE [Suspect]
     Indication: CHRONIC SINUSITIS
  2. PIPERACILLIN [Concomitant]
  3. TOBRAMYCIN [Concomitant]
  4. LEVALBUTEROL [Concomitant]
  5. DORNASE-ALPHA [Concomitant]
  6. MONTELUKAST [Concomitant]
  7. LORATADINE [Concomitant]
  8. PANCREALIPASE [Concomitant]
  9. NEBULISED TOBRAMYCIN [Concomitant]

REACTIONS (3)
  - ALPHA HAEMOLYTIC STREPTOCOCCAL INFECTION [None]
  - NOCARDIOSIS [None]
  - PSEUDOMONAS INFECTION [None]
